FAERS Safety Report 6927452-7 (Version None)
Quarter: 2010Q3

REPORT INFORMATION
  Report Type: 
  Country: None (occurrence: None)
  Receive Date: 20100812
  Receipt Date: 20100802
  Transmission Date: 20110219
  Serious: Yes (Hospitalization, Other)
  Sender: FDA-Public Use
  Company Number: 662450

PATIENT
  Age: 14 Year
  Sex: Male

DRUGS (23)
  1. VANCOMYCIN HCL [Suspect]
     Indication: SEPSIS
     Dosage: INTRAVENOUS ; INTRAVENOUS ; INTRAVENOUS
     Route: 042
     Dates: end: 20070519
  2. VANCOMYCIN HCL [Suspect]
     Indication: TOXIC SHOCK SYNDROME
     Dosage: INTRAVENOUS ; INTRAVENOUS ; INTRAVENOUS
     Route: 042
     Dates: end: 20070519
  3. VANCOMYCIN HCL [Suspect]
     Indication: WOUND INFECTION
     Dosage: INTRAVENOUS ; INTRAVENOUS ; INTRAVENOUS
     Route: 042
     Dates: end: 20070519
  4. VANCOMYCIN HCL [Suspect]
     Indication: SEPSIS
     Dosage: INTRAVENOUS ; INTRAVENOUS ; INTRAVENOUS
     Route: 042
     Dates: end: 20070519
  5. VANCOMYCIN HCL [Suspect]
     Indication: TOXIC SHOCK SYNDROME
     Dosage: INTRAVENOUS ; INTRAVENOUS ; INTRAVENOUS
     Route: 042
     Dates: end: 20070519
  6. VANCOMYCIN HCL [Suspect]
     Indication: WOUND INFECTION
     Dosage: INTRAVENOUS ; INTRAVENOUS ; INTRAVENOUS
     Route: 042
     Dates: end: 20070519
  7. VANCOMYCIN HCL [Suspect]
     Indication: SEPSIS
     Dosage: INTRAVENOUS ; INTRAVENOUS ; INTRAVENOUS
     Route: 042
     Dates: start: 20070415
  8. VANCOMYCIN HCL [Suspect]
     Indication: TOXIC SHOCK SYNDROME
     Dosage: INTRAVENOUS ; INTRAVENOUS ; INTRAVENOUS
     Route: 042
     Dates: start: 20070415
  9. VANCOMYCIN HCL [Suspect]
     Indication: WOUND INFECTION
     Dosage: INTRAVENOUS ; INTRAVENOUS ; INTRAVENOUS
     Route: 042
     Dates: start: 20070415
  10. PERCOCET [Concomitant]
  11. (OXYCODONE) [Concomitant]
  12. MULTI-VITAMINS [Concomitant]
  13. (VITAMIN C /00008001/) [Concomitant]
  14. ZINC SULFATE [Concomitant]
  15. SENNA-MINT WAF [Concomitant]
  16. PANTOPRAZOLE [Concomitant]
  17. BISACODYL [Concomitant]
  18. METOCLOPRAMIDE [Concomitant]
  19. ONDANSETRON [Concomitant]
  20. POLYETHYLENE GLYCOL [Concomitant]
  21. ACETAMINOPHEN [Concomitant]
  22. GENTAMICIN SULFATE [Concomitant]
  23. CLINDAMYCIN [Concomitant]

REACTIONS (21)
  - ABDOMINAL PAIN [None]
  - ALANINE AMINOTRANSFERASE INCREASED [None]
  - ANGIOEDEMA [None]
  - ASPARTATE AMINOTRANSFERASE INCREASED [None]
  - CYANOSIS [None]
  - DRUG HYPERSENSITIVITY [None]
  - DRUG RASH WITH EOSINOPHILIA AND SYSTEMIC SYMPTOMS [None]
  - HEADACHE [None]
  - HEART RATE INCREASED [None]
  - HYPOTENSION [None]
  - LACTIC ACIDOSIS [None]
  - LEUKOPENIA [None]
  - LYMPHADENOPATHY [None]
  - MOUTH ULCERATION [None]
  - NAIL DISCOLOURATION [None]
  - NEUTROPENIA [None]
  - PERICARDIAL EFFUSION [None]
  - PETECHIAE [None]
  - POSTOPERATIVE WOUND INFECTION [None]
  - PYREXIA [None]
  - VOMITING [None]
